FAERS Safety Report 9182609 (Version 1)
Quarter: 2013Q1

REPORT INFORMATION
  Report Type: Spontaneous
  Country: US (occurrence: US)
  Receive Date: 20130322
  Receipt Date: 20130322
  Transmission Date: 20140127
  Serious: Yes (Other)
  Sender: FDA-Public Use
  Company Number: US-BRISTOL-MYERS SQUIBB COMPANY-16843864

PATIENT
  Age: 43 Year
  Sex: Female

DRUGS (1)
  1. ERBITUX [Suspect]
     Indication: ADENOCARCINOMA
     Dosage: INF, SECOND DOSE
     Route: 042

REACTIONS (2)
  - Dyspepsia [Recovering/Resolving]
  - Chills [Recovering/Resolving]
